FAERS Safety Report 11528672 (Version 1)
Quarter: 2015Q3

REPORT INFORMATION
  Report Type: Spontaneous
  Country: US (occurrence: None)
  Receive Date: 20150918
  Receipt Date: 20150918
  Transmission Date: 20151125
  Serious: Yes (Disabling)
  Sender: FDA-Public Use
  Company Number: None

PATIENT
  Age: 78 Year
  Sex: Male
  Weight: 73.94 kg

DRUGS (21)
  1. INVOKANA [Suspect]
     Active Substance: CANAGLIFLOZIN
     Indication: ABDOMINAL PAIN UPPER
     Dosage: 1 PILL DAILY BY MOUTH DAILY
     Route: 048
  2. NEBULIZER [Concomitant]
     Active Substance: DEVICE
  3. LORAZAPAM [Concomitant]
     Active Substance: LORAZEPAM
  4. ATROVENT [Concomitant]
     Active Substance: IPRATROPIUM BROMIDE
  5. METFORMIN [Concomitant]
     Active Substance: METFORMIN HYDROCHLORIDE
  6. INVOKANA [Suspect]
     Active Substance: CANAGLIFLOZIN
     Indication: UNEVALUABLE EVENT
     Dosage: 1 PILL DAILY BY MOUTH DAILY
     Route: 048
  7. PROAIR HFA [Concomitant]
     Active Substance: ALBUTEROL SULFATE
  8. CALCIUM+D+MINERALS [Concomitant]
  9. INVOKANA [Suspect]
     Active Substance: CANAGLIFLOZIN
     Indication: TYPE 2 DIABETES MELLITUS
     Dosage: 1 PILL DAILY BY MOUTH DAILY
     Route: 048
  10. FLUTICASONE [Concomitant]
     Active Substance: FLUTICASONE\FLUTICASONE PROPIONATE
  11. OMEPRAZOL [Concomitant]
     Active Substance: OMEPRAZOLE
  12. DIGOXIN. [Concomitant]
     Active Substance: DIGOXIN
  13. ATORVASTATIN [Concomitant]
     Active Substance: ATORVASTATIN
  14. TAMSULOSIN [Concomitant]
     Active Substance: TAMSULOSIN
  15. PREDNISONE. [Concomitant]
     Active Substance: PREDNISONE
  16. ADVAIR HFA [Concomitant]
     Active Substance: FLUTICASONE PROPIONATE\SALMETEROL XINAFOATE
  17. ALFUZOSIN [Concomitant]
     Active Substance: ALFUZOSIN
  18. INVOKANA [Suspect]
     Active Substance: CANAGLIFLOZIN
     Indication: PROSTATIC DISORDER
     Dosage: 1 PILL DAILY BY MOUTH DAILY
     Route: 048
  19. INVOKANA [Suspect]
     Active Substance: CANAGLIFLOZIN
     Indication: HYPERTENSION
     Dosage: 1 PILL DAILY BY MOUTH DAILY
     Route: 048
  20. VERAPAMIL [Concomitant]
     Active Substance: VERAPAMIL HYDROCHLORIDE
  21. RAMIPRIL. [Concomitant]
     Active Substance: RAMIPRIL

REACTIONS (9)
  - Fatigue [None]
  - Urinary incontinence [None]
  - Activities of daily living impaired [None]
  - Fall [None]
  - Blood glucose abnormal [None]
  - Oedema peripheral [None]
  - Visual acuity reduced [None]
  - Gait disturbance [None]
  - Dizziness [None]

NARRATIVE: CASE EVENT DATE: 20150715
